FAERS Safety Report 23796244 (Version 8)
Quarter: 2025Q4

REPORT INFORMATION
  Report Type: Report from Study
  Country: KR (occurrence: KR)
  Receive Date: 20240430
  Receipt Date: 20251205
  Transmission Date: 20260118
  Serious: Yes (Death, Hospitalization, Other)
  Sender: ABBVIE
  Company Number: KR-ABBVIE-5734604

PATIENT
  Age: 87 Year
  Sex: Male
  Weight: 46 kg

DRUGS (25)
  1. VENCLEXTA [Suspect]
     Active Substance: VENETOCLAX
     Indication: Acute myeloid leukaemia
     Route: 048
     Dates: start: 20231127, end: 20231206
  2. VENCLEXTA [Suspect]
     Active Substance: VENETOCLAX
     Indication: Acute myeloid leukaemia
     Route: 048
     Dates: start: 20240222, end: 20240306
  3. VENCLEXTA [Suspect]
     Active Substance: VENETOCLAX
     Indication: Acute myeloid leukaemia
     Route: 048
     Dates: start: 20240125, end: 20240203
  4. VENCLEXTA [Suspect]
     Active Substance: VENETOCLAX
     Indication: Acute myeloid leukaemia
     Route: 048
     Dates: start: 20230807, end: 20230811
  5. VENCLEXTA [Suspect]
     Active Substance: VENETOCLAX
     Indication: Acute myeloid leukaemia
     Route: 048
     Dates: start: 20231012, end: 20231018
  6. VENCLEXTA [Suspect]
     Active Substance: VENETOCLAX
     Indication: Acute myeloid leukaemia
     Route: 048
     Dates: start: 20230806, end: 20230806
  7. VENCLEXTA [Suspect]
     Active Substance: VENETOCLAX
     Indication: Acute myeloid leukaemia
     Route: 048
     Dates: start: 20230907, end: 20230913
  8. VENCLEXTA [Suspect]
     Active Substance: VENETOCLAX
     Indication: Acute myeloid leukaemia
     Route: 048
     Dates: start: 20240321, end: 20240403
  9. VENCLEXTA [Suspect]
     Active Substance: VENETOCLAX
     Indication: Acute myeloid leukaemia
     Route: 048
     Dates: start: 20230805, end: 20230805
  10. VENCLEXTA [Suspect]
     Active Substance: VENETOCLAX
     Indication: Acute myeloid leukaemia
     Route: 048
     Dates: start: 20231226, end: 20240104
  11. VENCLEXTA [Suspect]
     Active Substance: VENETOCLAX
     Indication: Acute myeloid leukaemia
     Route: 048
     Dates: start: 20240422, end: 20240422
  12. Meckool [Concomitant]
     Indication: Prophylactic chemotherapy
     Route: 042
     Dates: start: 20231129, end: 20231206
  13. VIDAZA [Concomitant]
     Active Substance: AZACITIDINE
     Indication: Acute myeloid leukaemia
     Dosage: 110.25MG
     Route: 042
     Dates: start: 20240125, end: 20240202
  14. VIDAZA [Concomitant]
     Active Substance: AZACITIDINE
     Indication: Acute myeloid leukaemia
     Dosage: INJ 100MG, 114.75MG
     Route: 042
     Dates: start: 20230805, end: 20230811
  15. VIDAZA [Concomitant]
     Active Substance: AZACITIDINE
     Indication: Acute myeloid leukaemia
     Dosage: 110.25MG
     Route: 042
     Dates: start: 20231226, end: 20240104
  16. VIDAZA [Concomitant]
     Active Substance: AZACITIDINE
     Indication: Acute myeloid leukaemia
     Dosage: 110.25MG
     Route: 042
     Dates: start: 20231012, end: 20231020
  17. VIDAZA [Concomitant]
     Active Substance: AZACITIDINE
     Indication: Acute myeloid leukaemia
     Dosage: 110.25MG
     Route: 042
     Dates: start: 20231127, end: 20231206
  18. VIDAZA [Concomitant]
     Active Substance: AZACITIDINE
     Indication: Acute myeloid leukaemia
     Dosage: 110.25 MG
     Route: 042
     Dates: start: 20230907, end: 20230915
  19. VIDAZA [Concomitant]
     Active Substance: AZACITIDINE
     Indication: Acute myeloid leukaemia
     Dosage: 110.25MG
     Route: 042
     Dates: start: 20240222, end: 20240304
  20. VIDAZA [Concomitant]
     Active Substance: AZACITIDINE
     Indication: Acute myeloid leukaemia
     Dosage: 110.25MG
     Route: 042
     Dates: start: 20240422, end: 20240422
  21. VIDAZA [Concomitant]
     Active Substance: AZACITIDINE
     Indication: Acute myeloid leukaemia
     Dosage: 110.25MG
     Route: 042
     Dates: start: 20240321, end: 20240401
  22. HARNAL [Concomitant]
     Active Substance: TAMSULOSIN HYDROCHLORIDE
     Indication: Benign prostatic hyperplasia
     Route: 048
     Dates: start: 2013, end: 20240422
  23. Hinechol [Concomitant]
     Indication: Benign prostatic hyperplasia
     Dosage: TIME INTERVAL: 0.33333333 DAYS
     Route: 048
     Dates: start: 2023, end: 20240422
  24. Citopcin [Concomitant]
     Indication: C-reactive protein increased
     Route: 048
     Dates: start: 20230808, end: 20240422
  25. Megace F [Concomitant]
     Indication: Decreased appetite
     Dosage: SUSP
     Route: 048
     Dates: start: 20230921, end: 20240422

REACTIONS (3)
  - Intestinal sepsis [Fatal]
  - Cerebral infarction [Recovered/Resolved]
  - Acute myeloid leukaemia [Not Recovered/Not Resolved]

NARRATIVE: CASE EVENT DATE: 20231116
